FAERS Safety Report 7358087-2 (Version None)
Quarter: 2011Q1

REPORT INFORMATION
  Report Type: 
  Country: None (occurrence: None)
  Receive Date: 20110314
  Receipt Date: 20110314
  Transmission Date: 20110831
  Serious: Yes (Other)
  Sender: FDA-Public Use
  Company Number: None

PATIENT
  Sex: Male

DRUGS (5)
  1. DILANTIN [Concomitant]
  2. LAMOTRIGINE [Concomitant]
  3. DIOVAN [Concomitant]
  4. LISINOPRIL [Concomitant]
  5. CLORAZEPATE 3.75 MG [Suspect]
     Indication: AGITATION
     Dosage: 3.75 MG BID PO
     Route: 048
     Dates: start: 20100713, end: 20100716

REACTIONS (2)
  - AGITATION [None]
  - PRODUCT SUBSTITUTION ISSUE [None]
